FAERS Safety Report 8057626-6 (Version None)
Quarter: 2012Q1

REPORT INFORMATION
  Report Type: 
  Country: None (occurrence: None)
  Receive Date: 20120120
  Receipt Date: 20120112
  Transmission Date: 20120608
  Serious: No
  Sender: FDA-Public Use
  Company Number: US-BIOGENIDEC-2011BI030046

PATIENT
  Age: 42 Year
  Sex: Male

DRUGS (1)
  1. TYSABRI [Suspect]
     Indication: MULTIPLE SCLEROSIS
     Route: 042
     Dates: start: 20110426

REACTIONS (7)
  - GAIT DISTURBANCE [None]
  - COGNITIVE DISORDER [None]
  - VISUAL IMPAIRMENT [None]
  - LOSS OF CONTROL OF LEGS [None]
  - NAUSEA [None]
  - DIZZINESS [None]
  - FATIGUE [None]
